FAERS Safety Report 6570167-8 (Version None)
Quarter: 2010Q1

REPORT INFORMATION
  Report Type: 
  Country: None (occurrence: None)
  Receive Date: 20100204
  Receipt Date: 20100201
  Transmission Date: 20100710
  Serious: Yes (Hospitalization, Other)
  Sender: FDA-Public Use
  Company Number: US-PFIZER INC-2009310559

PATIENT
  Sex: Female
  Weight: 78.005 kg

DRUGS (6)
  1. REVATIO [Suspect]
     Indication: PULMONARY HYPERTENSION
     Dosage: 20 MG, 3X/DAY
     Route: 048
     Dates: start: 20091212
  2. VERAPAMIL [Concomitant]
     Dosage: 240 MG, 1X/DAY
  3. LASIX [Concomitant]
     Dosage: 40 MG, 1X/DAY
  4. ZOCOR [Concomitant]
     Dosage: 40 MG, 1X/DAY
  5. ADVAIR DISKUS 100/50 [Concomitant]
     Dosage: 250/50
  6. SPIRIVA [Concomitant]
     Dosage: 18

REACTIONS (3)
  - ASTHMA [None]
  - BURNING SENSATION [None]
  - CARDIAC FAILURE CONGESTIVE [None]
